FAERS Safety Report 7120688-4 (Version None)
Quarter: 2010Q4

REPORT INFORMATION
  Report Type: 
  Country: None (occurrence: None)
  Receive Date: 20101124
  Receipt Date: 20101108
  Transmission Date: 20110411
  Serious: Yes (Other)
  Sender: FDA-Public Use
  Company Number: US-BAYER-201037926NA

PATIENT
  Age: 22 Year
  Sex: Female
  Weight: 90 kg

DRUGS (11)
  1. YAZ [Suspect]
     Indication: PREMENSTRUAL SYNDROME
     Route: 048
     Dates: start: 20060801, end: 20090101
  2. YASMIN [Suspect]
     Indication: PREMENSTRUAL SYNDROME
     Route: 048
     Dates: start: 20060801, end: 20090101
  3. OCELLA [Suspect]
     Indication: PREMENSTRUAL SYNDROME
     Route: 048
     Dates: start: 20080701, end: 20090901
  4. IBUPROFEN [Concomitant]
     Indication: INFLAMMATION
     Route: 048
     Dates: start: 20070919, end: 20080206
  5. PONSTEL [Concomitant]
     Indication: INFLAMMATION
     Route: 048
     Dates: start: 20041111
  6. ALBUTEROL [Concomitant]
     Indication: DYSPNOEA
     Dosage: 90 MCG
     Route: 048
     Dates: start: 20050101
  7. LEVOTHYROXINE SODIUM [Concomitant]
     Indication: HYPOTHYROIDISM
     Dosage: 100 MCG
     Route: 048
     Dates: start: 20100204
  8. AZITHROMYCIN [Concomitant]
     Route: 048
     Dates: start: 20090301, end: 20091017
  9. ADIPEX-P [Concomitant]
     Route: 048
     Dates: start: 20060105, end: 20091029
  10. ASMANEX TWISTHALER [Concomitant]
     Dosage: 220 MCG
  11. BIO TEN VITAMINS [Concomitant]

REACTIONS (8)
  - ABDOMINAL PAIN UPPER [None]
  - BLOOD CREATININE ABNORMAL [None]
  - CHOLECYSTITIS CHRONIC [None]
  - CHOLELITHIASIS [None]
  - DIARRHOEA [None]
  - HYPERTENSION [None]
  - NAUSEA [None]
  - VOMITING [None]
